FAERS Safety Report 8470968-5 (Version None)
Quarter: 2012Q2

REPORT INFORMATION
  Report Type: 
  Country: None (occurrence: None)
  Receive Date: 20120323
  Receipt Date: 20111117
  Transmission Date: 20120825
  Serious: Yes (Other)
  Sender: FDA-Public Use
  Company Number: 163-21880-11082858

PATIENT
  Age: 72 Year
  Sex: Male
  Weight: 166 kg

DRUGS (20)
  1. LAMOTRIGINE [Concomitant]
  2. BENADRYL (DIPHENHYDRAMINE)(UNKNOWN) [Concomitant]
  3. DIFLUCAN [Concomitant]
  4. IBUPROFEN [Concomitant]
  5. PREDNISONE [Concomitant]
  6. ANDROGEN (ANDROGENS)(UNKNOWN) [Concomitant]
  7. IMMUNE GLOBULIN NOS [Concomitant]
  8. TEGRETOL [Concomitant]
  9. ASPIRIN [Concomitant]
  10. VITAMIN C (ASCORBIC ACID)(UNKNOWN) [Concomitant]
  11. ZITHROMAX [Concomitant]
  12. LAMICTAL [Concomitant]
  13. TERAZOSIN HCL (TERAZOSIN)(UNKNOWN) [Concomitant]
  14. FISH  OIL (FISH OIL)(UNKNOWN) [Concomitant]
  15. LENALIDOMIDE [Suspect]
     Indication: MULTIPLE MYELOMA
     Dosage: SEE IMAGE
     Route: 048
     Dates: start: 20090101
  16. LENALIDOMIDE [Suspect]
     Indication: MULTIPLE MYELOMA
     Dosage: SEE IMAGE
     Route: 048
     Dates: start: 20100104
  17. LENALIDOMIDE [Suspect]
     Indication: MULTIPLE MYELOMA
     Dosage: SEE IMAGE
     Route: 048
     Dates: start: 20081101
  18. LENALIDOMIDE [Suspect]
     Indication: MULTIPLE MYELOMA
     Dosage: SEE IMAGE
     Route: 048
     Dates: start: 20090901
  19. LENALIDOMIDE [Suspect]
     Indication: MULTIPLE MYELOMA
     Dosage: SEE IMAGE
     Route: 048
     Dates: start: 20110509, end: 20110101
  20. MULTIVITAL PLATINUM (PLATINUM)(UNKNOWN) [Concomitant]

REACTIONS (1)
  - PANCYTOPENIA [None]
